FAERS Safety Report 4528610-1 (Version None)
Quarter: 2004Q4

REPORT INFORMATION
  Report Type: 
  Country: None (occurrence: None)
  Receive Date: 20041216
  Receipt Date: 20041202
  Transmission Date: 20050328
  Serious: Yes (Other)
  Sender: FDA-Public Use
  Company Number: PHFR2004GB04466

PATIENT
  Sex: Male

DRUGS (4)
  1. ADALAT SL - SLOW RELEASE [Concomitant]
     Route: 065
  2. MOBIFLEX [Concomitant]
     Route: 065
  3. ASPIRIN [Concomitant]
     Route: 065
  4. TEGRETOL [Suspect]
     Dosage: 800MG + 600MG
     Route: 065

REACTIONS (2)
  - CEREBROVASCULAR ACCIDENT [None]
  - CONVULSION [None]
